FAERS Safety Report 24047903 (Version 3)
Quarter: 2025Q3

REPORT INFORMATION
  Report Type: Spontaneous
  Country: CA (occurrence: CA)
  Receive Date: 20240703
  Receipt Date: 20250802
  Transmission Date: 20251021
  Serious: Yes (Other)
  Sender: ALEXION PHARMACEUTICALS
  Company Number: CA-ALXN-202406CAN001498CA

PATIENT
  Age: 5 Year
  Sex: Female

DRUGS (13)
  1. SOLIRIS [Suspect]
     Active Substance: ECULIZUMAB
     Route: 065
  2. CYCLOPHOSPHAMIDE [Suspect]
     Active Substance: CYCLOPHOSPHAMIDE
     Indication: Prophylaxis against graft versus host disease
     Route: 065
  3. MYCOPHENOLATE MOFETIL [Suspect]
     Active Substance: MYCOPHENOLATE MOFETIL
     Indication: Prophylaxis against graft versus host disease
     Route: 065
  4. RUXOLITINIB [Suspect]
     Active Substance: RUXOLITINIB
     Route: 065
  5. ALEMTUZUMAB [Suspect]
     Active Substance: ALEMTUZUMAB
     Indication: Allogenic stem cell transplantation
     Route: 065
  6. ALEMTUZUMAB [Suspect]
     Active Substance: ALEMTUZUMAB
     Indication: Still^s disease
  7. ALEMTUZUMAB [Suspect]
     Active Substance: ALEMTUZUMAB
     Indication: Bone marrow conditioning regimen
  8. BUSULFAN [Suspect]
     Active Substance: BUSULFAN
     Indication: Bone marrow conditioning regimen
     Route: 065
  9. BUSULFAN [Suspect]
     Active Substance: BUSULFAN
     Indication: Allogenic stem cell transplantation
  10. BUSULFAN [Suspect]
     Active Substance: BUSULFAN
     Indication: Still^s disease
  11. FLUDARABINE [Suspect]
     Active Substance: FLUDARABINE PHOSPHATE
     Indication: Bone marrow conditioning regimen
     Route: 065
  12. FLUDARABINE [Suspect]
     Active Substance: FLUDARABINE PHOSPHATE
     Indication: Allogenic stem cell transplantation
  13. FLUDARABINE [Suspect]
     Active Substance: FLUDARABINE PHOSPHATE
     Indication: Still^s disease

REACTIONS (12)
  - Acute kidney injury [Unknown]
  - Bronchiolitis obliterans syndrome [Unknown]
  - Hepatitis [Unknown]
  - Organising pneumonia [Unknown]
  - Thrombotic microangiopathy [Unknown]
  - Posterior reversible encephalopathy syndrome [Recovered/Resolved]
  - Herpes simplex [Unknown]
  - Urinary tract infection bacterial [Unknown]
  - Hypertension [Recovered/Resolved]
  - Mucosal inflammation [Unknown]
  - Staphylococcal infection [Unknown]
  - Product use in unapproved indication [Unknown]
